FAERS Safety Report 5273110-7 (Version None)
Quarter: 2007Q1

REPORT INFORMATION
  Report Type: 
  Country: None (occurrence: None)
  Receive Date: 20070322
  Receipt Date: 20070313
  Transmission Date: 20070707
  Serious: Yes (Hospitalization)
  Sender: FDA-Public Use
  Company Number: GB-PFIZER INC-2007015343

PATIENT
  Age: 25 Year
  Sex: Male

DRUGS (5)
  1. LYRICA [Suspect]
     Indication: ANALGESIC EFFECT
     Route: 048
  2. DECONGESTANT [Suspect]
  3. IBUPROFEN [Concomitant]
  4. MIRTAZAPINE [Concomitant]
  5. OXYCODONE HCL [Concomitant]

REACTIONS (2)
  - BODY TEMPERATURE INCREASED [None]
  - DEHYDRATION [None]
